FAERS Safety Report 24051238 (Version 1)
Quarter: 2024Q3

REPORT INFORMATION
  Report Type: Spontaneous
  Country: US (occurrence: US)
  Receive Date: 20240704
  Receipt Date: 20240704
  Transmission Date: 20241016
  Serious: No
  Sender: ROCHE
  Company Number: US-ROCHE-10000010383

PATIENT
  Sex: Female

DRUGS (2)
  1. ACTEMRA [Suspect]
     Active Substance: TOCILIZUMAB
     Indication: Rheumatoid arthritis
     Route: 058
     Dates: start: 202403
  2. FORTEO [Concomitant]
     Active Substance: TERIPARATIDE

REACTIONS (6)
  - Mental disorder [Unknown]
  - Depression [Unknown]
  - Anxiety [Unknown]
  - Anger [Unknown]
  - Joint swelling [Unknown]
  - Arthralgia [Unknown]
